FAERS Safety Report 16699650 (Version 1)
Quarter: 2019Q3

REPORT INFORMATION
  Report Type: Spontaneous
  Country: DK (occurrence: DK)
  Receive Date: 20190813
  Receipt Date: 20190813
  Transmission Date: 20191004
  Serious: Yes (Death)
  Sender: FDA-Public Use
  Company Number: DK-ARBOR PHARMACEUTICALS, LLC-DK-2019ARB001242

PATIENT

DRUGS (1)
  1. AMPHETAMINE SULFATE. [Suspect]
     Active Substance: AMPHETAMINE SULFATE
     Indication: PRODUCT USED FOR UNKNOWN INDICATION
     Dosage: UNK

REACTIONS (2)
  - Splenic rupture [Fatal]
  - Internal haemorrhage [Fatal]
